FAERS Safety Report 6158750-5 (Version None)
Quarter: 2009Q2

REPORT INFORMATION
  Report Type: 
  Country: None (occurrence: None)
  Receive Date: 20090417
  Receipt Date: 20090410
  Transmission Date: 20091009
  Serious: Yes (Hospitalization)
  Sender: FDA-Public Use
  Company Number: B0556274A

PATIENT
  Age: 8 Year
  Sex: Female
  Weight: 26 kg

DRUGS (4)
  1. LAMICTAL [Suspect]
     Indication: EPILEPSY
     Dosage: 5MG PER DAY
     Route: 048
     Dates: start: 20090106, end: 20090118
  2. TOPINASAL [Concomitant]
     Indication: EPILEPSY
     Dosage: 200MG PER DAY
     Route: 048
  3. TEGRETOL [Concomitant]
     Indication: EPILEPSY
     Route: 048
  4. SELENICA-R [Concomitant]
     Indication: EPILEPSY
     Dosage: 800MG PER DAY
     Route: 048

REACTIONS (6)
  - ALANINE AMINOTRANSFERASE INCREASED [None]
  - APHTHOUS STOMATITIS [None]
  - ASPARTATE AMINOTRANSFERASE INCREASED [None]
  - PYREXIA [None]
  - RASH [None]
  - TONSILLITIS [None]
